FAERS Safety Report 6106312-8 (Version None)
Quarter: 2009Q1

REPORT INFORMATION
  Report Type: 
  Country: None (occurrence: None)
  Receive Date: 20090306
  Receipt Date: 20090224
  Transmission Date: 20090719
  Serious: Yes (Other)
  Sender: FDA-Public Use
  Company Number: PHEH2009US00558

PATIENT
  Sex: Female
  Weight: 80.272 kg

DRUGS (8)
  1. ZADITOR [Suspect]
     Indication: PRURITUS
     Dosage: 1 GTT BID
     Route: 031
     Dates: start: 20081230
  2. WARFARIN SODIUM [Concomitant]
     Indication: PROPHYLAXIS
     Dosage: UNK
  3. ZIAC [Concomitant]
     Indication: BLOOD PRESSURE
  4. SULAR [Concomitant]
  5. COZAAR [Concomitant]
  6. ASPIRIN [Concomitant]
  7. LORATADINE [Concomitant]
  8. COUMADIN [Concomitant]

REACTIONS (5)
  - ABNORMAL SENSATION IN EYE [None]
  - CONJUNCTIVAL HAEMORRHAGE [None]
  - EYE HAEMORRHAGE [None]
  - INTERNATIONAL NORMALISED RATIO INCREASED [None]
  - OCULAR HYPERAEMIA [None]
